FAERS Safety Report 4741952-X (Version None)
Quarter: 2005Q3

REPORT INFORMATION
  Report Type: 
  Country: None (occurrence: None)
  Receive Date: 20050801
  Receipt Date: 20050611
  Transmission Date: 20060218
  Serious: No
  Sender: FDA-Public Use
  Company Number: 2005PV000032

PATIENT
  Age: 74 Year
  Sex: Female
  Weight: 77.1115 kg

DRUGS (13)
  1. BYETTA [Suspect]
     Indication: DIABETES MELLITUS NON-INSULIN-DEPENDENT
     Dosage: 5 UG;BID;SC
     Route: 058
     Dates: start: 20050611
  2. LANTUS [Concomitant]
  3. METFORMIN [Concomitant]
  4. ZOCOR [Concomitant]
  5. NORVASC [Concomitant]
  6. NEXIUM [Concomitant]
  7. NEURONTIN [Concomitant]
  8. HYZAAR [Concomitant]
  9. SYNTHROID [Concomitant]
  10. CYMBALTA [Concomitant]
  11. NETOCLOTRAM [Concomitant]
  12. CHROMAGEN SORTE [Concomitant]
  13. LANTUS [Concomitant]

REACTIONS (3)
  - BLOOD GLUCOSE INCREASED [None]
  - INJECTION SITE HAEMORRHAGE [None]
  - NAUSEA [None]
